FAERS Safety Report 5650690-0 (Version None)
Quarter: 2008Q1

REPORT INFORMATION
  Report Type: 
  Country: None (occurrence: None)
  Receive Date: 20080305
  Receipt Date: 20080305
  Transmission Date: 20080703
  Serious: Yes (Life-Threatening)
  Sender: FDA-Public Use
  Company Number: None

PATIENT
  Age: 73 Year
  Sex: Female

DRUGS (10)
  1. HEPARIN [Suspect]
     Indication: MITRAL VALVE REPLACEMENT
     Dosage: PER PROTOCOLDURING SURGERY IV
     Route: 042
     Dates: start: 20070920, end: 20070920
  2. HEPARIN [Suspect]
     Indication: CORONARY ANGIOPLASTY
     Dosage: PER PROTOCOL DURING PTCA; IV; TWICE DURING 2006
     Route: 042
  3. ASPIRIN [Concomitant]
  4. COZAAR [Concomitant]
  5. PLAVIX [Concomitant]
  6. COREG [Concomitant]
  7. SIMVASTATIN [Concomitant]
  8. SPIRONOLACTONE [Concomitant]
  9. POTASSIUM CHLORIDE [Concomitant]
  10. BUMETANIDE [Concomitant]

REACTIONS (6)
  - ARRHYTHMIA [None]
  - CARDIOMYOPATHY [None]
  - CEREBROVASCULAR ACCIDENT [None]
  - DEEP VEIN THROMBOSIS [None]
  - HEPARIN-INDUCED THROMBOCYTOPENIA [None]
  - OEDEMA PERIPHERAL [None]
